FAERS Safety Report 10146091 (Version 1)
Quarter: 2014Q2

REPORT INFORMATION
  Report Type: Report from Study
  Country: US (occurrence: US)
  Receive Date: 20140501
  Receipt Date: 20140501
  Transmission Date: 20141212
  Serious: Yes (Death, Other)
  Sender: FDA-Public Use
  Company Number: US-BAYER-2014-058981

PATIENT
  Sex: 0

DRUGS (4)
  1. ACETYLSALICYLIC ACID({=100 MG) [Suspect]
     Dosage: 81 MG, QD
     Route: 064
  2. ACETYLSALICYLIC ACID({=100 MG) [Suspect]
     Dosage: 81 MG, QD
     Route: 064
  3. FOLIC ACID [Concomitant]
     Dosage: 400 MCG
     Route: 064
  4. FOLIC ACID [Concomitant]
     Dosage: 400 MCG
     Route: 064

REACTIONS (3)
  - Death [Fatal]
  - Premature baby [None]
  - Foetal exposure timing unspecified [None]
